FAERS Safety Report 9514830 (Version 1)
Quarter: 2013Q1

REPORT INFORMATION
  Report Type: Spontaneous
  Country: US (occurrence: None)
  Receive Date: 20130305
  Receipt Date: 20130305
  Transmission Date: 20140127
  Serious: Yes (Other)
  Sender: FDA-Public Use
  Company Number: 163-21880-12121778

PATIENT
  Age: 53 Year
  Sex: Male
  Weight: 63.96 kg

DRUGS (3)
  1. REVLIMID [Suspect]
     Indication: MANTLE CELL LYMPHOMA
     Dosage: 25 MG, 1 IN 1 D, PO
     Route: 048
     Dates: start: 20121024, end: 20121113
  2. LEVOFLOXACIN (LEVOFLOXACIN) (TABLETS) [Concomitant]
  3. DRONABINOL (DRONABINOL) (10 MILLIGRAM, CAPSULES) [Concomitant]

REACTIONS (5)
  - Tumour flare [None]
  - Headache [None]
  - Night sweats [None]
  - Malaise [None]
  - Nausea [None]
